FAERS Safety Report 4600499-1 (Version None)
Quarter: 2005Q1

REPORT INFORMATION
  Report Type: 
  Country: None (occurrence: None)
  Receive Date: 20050304
  Receipt Date: 20050222
  Transmission Date: 20050727
  Serious: Yes (Other)
  Sender: FDA-Public Use
  Company Number: 2004240727US

PATIENT
  Sex: Female
  Weight: 56.246 kg

DRUGS (4)
  1. INSPRA [Suspect]
     Indication: HYPERTENSION
     Dosage: 1 TABLET (ONCE DAILY), ORAL
     Route: 048
     Dates: start: 20040711
  2. EZETIMIBE (EZETIMIBE) [Concomitant]
  3. GLIMEPIRIDE [Concomitant]
  4. DRUG USED IN DIABETES (DRUG USE IN DIABETES) [Concomitant]

REACTIONS (3)
  - CARDIAC FLUTTER [None]
  - COUGH [None]
  - POLLAKIURIA [None]
